FAERS Safety Report 4659273-2 (Version None)
Quarter: 2005Q2

REPORT INFORMATION
  Report Type: 
  Country: None (occurrence: None)
  Receive Date: 20050511
  Receipt Date: 20050505
  Transmission Date: 20051028
  Serious: Yes (Other)
  Sender: FDA-Public Use
  Company Number: US-KINGPHARMUSA00001-K200500582

PATIENT
  Age: 52 Year
  Sex: Female

DRUGS (2)
  1. ALTACE [Suspect]
     Indication: HYPERTENSION
     Dosage: 2.5 MG, QD
     Route: 048
     Dates: start: 20050419, end: 20050425
  2. ALTACE [Suspect]
     Dosage: 5 MG, QD
     Route: 048
     Dates: start: 20050426

REACTIONS (3)
  - BLOOD PRESSURE INCREASED [None]
  - CHEST PAIN [None]
  - VOMITING [None]
